FAERS Safety Report 21745846 (Version 1)
Quarter: 2022Q4

REPORT INFORMATION
  Report Type: Spontaneous
  Country: US (occurrence: US)
  Receive Date: 20221219
  Receipt Date: 20221219
  Transmission Date: 20230113
  Serious: Yes (Hospitalization)
  Sender: FDA-Public Use
  Company Number: US-BRISTOL-MYERS SQUIBB COMPANY-2022-152525

PATIENT
  Age: 78 Year
  Sex: Male
  Weight: 81.9 kg

DRUGS (1)
  1. REVLIMID [Suspect]
     Active Substance: LENALIDOMIDE
     Indication: Plasma cell myeloma
     Dosage: 5MG DAILY D1-21 THEN 7 DAYS OFF
     Route: 048
     Dates: start: 20221125

REACTIONS (1)
  - Adverse event [Unknown]
